FAERS Safety Report 8523397-X (Version None)
Quarter: 2012Q3

REPORT INFORMATION
  Report Type: 
  Country: None (occurrence: None)
  Receive Date: 20120720
  Receipt Date: 20120712
  Transmission Date: 20120928
  Serious: Yes (Hospitalization)
  Sender: FDA-Public Use
  Company Number: US-US-EMD SERONO, INC.-7064284

PATIENT
  Sex: Female
  Weight: 95 kg

DRUGS (6)
  1. REBIF [Suspect]
     Route: 058
     Dates: end: 20110501
  2. ACTOPLUS MET [Concomitant]
     Indication: DIABETES MELLITUS
  3. INSULIN [Concomitant]
     Indication: DIABETES MELLITUS
  4. SYNTHROID [Concomitant]
     Indication: HYPOTHYROIDISM
  5. CYMBALTA [Concomitant]
     Indication: DEPRESSION
  6. REBIF [Suspect]
     Indication: MULTIPLE SCLEROSIS
     Route: 058
     Dates: start: 20110324

REACTIONS (6)
  - PLATELET COUNT DECREASED [None]
  - CONVULSION [None]
  - RASH [None]
  - WHITE BLOOD CELL COUNT DECREASED [None]
  - URINARY TRACT INFECTION [None]
  - AMNESIA [None]
